FAERS Safety Report 19061482 (Version 1)
Quarter: 2021Q1

REPORT INFORMATION
  Report Type: Spontaneous
  Country: US (occurrence: US)
  Receive Date: 20210326
  Receipt Date: 20210326
  Transmission Date: 20210420
  Serious: Yes (Other)
  Sender: FDA-Public Use
  Company Number: US-PFIZER INC-2021269399

PATIENT
  Age: 63 Year
  Sex: Male

DRUGS (5)
  1. VANCOMYCIN HCL [Suspect]
     Active Substance: VANCOMYCIN HYDROCHLORIDE
     Indication: SEPSIS
     Dosage: 500 MG, IN 100 ML OF 5%DEXTROSE IN WATER WAS GIVEN OVER 30 TO 60 MINUTES EVERY SIX HOURS
  2. HYDROCORTISONE. [Concomitant]
     Active Substance: HYDROCORTISONE
     Indication: BACTERIAL PERICARDITIS
     Dosage: UNK
  3. VANCOMYCIN HCL [Suspect]
     Active Substance: VANCOMYCIN HYDROCHLORIDE
     Dosage: UNKUNK (ONE?HOUR VANCOMYCIN INFUSION, MORNING OF THE SECOND POSTOPERATIVE DAY)
  4. VANCOMYCIN HCL [Suspect]
     Active Substance: VANCOMYCIN HYDROCHLORIDE
     Dosage: UNK (VANCOMYCIN WAS GIVEN OVER TWO HOURS.)
  5. DEXTROSE IN WATER [Concomitant]
     Active Substance: DEXTROSE\WATER
     Dosage: UNK, 4X/DAY

REACTIONS (4)
  - Hypersensitivity [Recovered/Resolved]
  - Bradycardia [Recovered/Resolved]
  - Hypotension [Recovered/Resolved]
  - Incorrect drug administration rate [Recovered/Resolved]
